FAERS Safety Report 8822524 (Version 2)
Quarter: 2013Q1

REPORT INFORMATION
  Report Type: Spontaneous
  Country: US (occurrence: US)
  Receive Date: 20121003
  Receipt Date: 20130326
  Transmission Date: 20140127
  Serious: Yes (Hospitalization, Other)
  Sender: FDA-Public Use
  Company Number: US-PFIZER INC-2012051349

PATIENT
  Age: 41 Year
  Sex: Female

DRUGS (10)
  1. CHANTIX [Suspect]
     Indication: SMOKING CESSATION THERAPY
     Dosage: STARTER PACK
     Dates: start: 2008, end: 200803
  2. PERCOCET [Concomitant]
     Indication: BACK PAIN
     Dosage: UNK
     Dates: start: 200309
  3. PERCOCET [Concomitant]
     Indication: PAIN IN EXTREMITY
  4. PERCOCET [Concomitant]
     Indication: MUSCULOSKELETAL PAIN
  5. ALPRAZOLAM [Concomitant]
     Indication: ANXIETY
     Dosage: UNK
     Dates: start: 200208
  6. ALPRAZOLAM [Concomitant]
     Indication: BLOOD PRESSURE
  7. LEXAPRO [Concomitant]
     Indication: DEPRESSION
     Dosage: UNK
     Dates: start: 200208
  8. FLOMAX [Concomitant]
     Indication: BLADDER DISORDER
     Dosage: UNK
     Dates: start: 2007, end: 201011
  9. TOPAMAX [Concomitant]
     Indication: HEADACHE
     Dosage: UNK
  10. TOPAMAX [Concomitant]
     Indication: MIGRAINE

REACTIONS (8)
  - Intentional overdose [Recovered/Resolved]
  - Suicide attempt [Recovered/Resolved]
  - Cerebrovascular accident [Not Recovered/Not Resolved]
  - Depression [Not Recovered/Not Resolved]
  - Thrombosis [Not Recovered/Not Resolved]
  - Anxiety [Not Recovered/Not Resolved]
  - Sensory loss [Not Recovered/Not Resolved]
  - Pain [Not Recovered/Not Resolved]
